FAERS Safety Report 6463667-2 (Version None)
Quarter: 2009Q4

REPORT INFORMATION
  Report Type: 
  Country: None (occurrence: None)
  Receive Date: 20091123
  Receipt Date: 20091107
  Transmission Date: 20100525
  Serious: Yes (Death)
  Sender: FDA-Public Use
  Company Number: 2009BM000302

PATIENT
  Age: 12 Year
  Sex: Female

DRUGS (1)
  1. NAGLAZYME [Suspect]
     Indication: MUCOPOLYSACCHARIDOSIS VI
     Dosage: 15 MG; ; IVDRP
     Route: 041
     Dates: start: 20090101, end: 20090101

REACTIONS (1)
  - ASPHYXIA [None]
